FAERS Safety Report 17395767 (Version 1)
Quarter: 2020Q1

REPORT INFORMATION
  Report Type: Spontaneous
  Country: US (occurrence: US)
  Receive Date: 20200206
  Receipt Date: 20200206
  Transmission Date: 20200409
  Serious: Yes (Hospitalization)
  Sender: FDA-Public Use
  Company Number: None

PATIENT
  Age: 58 Year
  Sex: Female
  Weight: 60 kg

DRUGS (4)
  1. SPIRINOLACTONE [Concomitant]
     Active Substance: SPIRONOLACTONE
  2. LORAZEPAM. [Concomitant]
     Active Substance: LORAZEPAM
  3. SORAFENIB [Suspect]
     Active Substance: SORAFENIB
     Indication: HEPATOCELLULAR CARCINOMA
     Route: 048
     Dates: start: 20200201, end: 20200204
  4. FUROSEMIDE. [Concomitant]
     Active Substance: FUROSEMIDE

REACTIONS (5)
  - Acute kidney injury [None]
  - Nausea [None]
  - Vomiting [None]
  - Tumour lysis syndrome [None]
  - Fatigue [None]

NARRATIVE: CASE EVENT DATE: 20200205
